FAERS Safety Report 9217898 (Version 1)
Quarter: 2013Q2

REPORT INFORMATION
  Report Type: Spontaneous
  Country: US (occurrence: US)
  Receive Date: 20130408
  Receipt Date: 20130408
  Transmission Date: 20140414
  Serious: Yes (Other)
  Sender: FDA-Public Use
  Company Number: US-TEVA-385800USA

PATIENT
  Age: 65 Year
  Sex: Male

DRUGS (1)
  1. SYNRIBO [Suspect]
     Indication: CHRONIC MYELOID LEUKAEMIA
     Dates: start: 20130204

REACTIONS (2)
  - Bone marrow failure [Not Recovered/Not Resolved]
  - Bone marrow toxicity [Not Recovered/Not Resolved]
